FAERS Safety Report 4592720-3 (Version None)
Quarter: 2005Q1

REPORT INFORMATION
  Report Type: 
  Country: None (occurrence: None)
  Receive Date: 20050222
  Receipt Date: 20050204
  Transmission Date: 20050727
  Serious: Yes (Hospitalization, Other)
  Sender: FDA-Public Use
  Company Number: PL-2005-001628

PATIENT
  Age: 58 Year
  Sex: Female
  Weight: 63 kg

DRUGS (6)
  1. FLUDARABINE PHOSPHATE [Suspect]
     Indication: CHRONIC LYMPHOCYTIC LEUKAEMIA
     Dosage: 25 MG/M2, CYCLE X 5D, INTRAVENOUS
     Route: 042
     Dates: end: 20050102
  2. NYSTATIN [Concomitant]
  3. PREDNISONE TAB [Concomitant]
  4. PLATELETS [Concomitant]
  5. ETAMSILATE (ETAMSILATE) [Concomitant]
  6. BACTRIM [Concomitant]

REACTIONS (4)
  - ANTI-PLATELET ANTIBODY POSITIVE [None]
  - AUTOIMMUNE THROMBOCYTOPENIA [None]
  - BONE MARROW TUMOUR CELL INFILTRATION [None]
  - DISEASE PROGRESSION [None]
